FAERS Safety Report 15830774 (Version 2)
Quarter: 2019Q1

REPORT INFORMATION
  Report Type: Report from Study
  Country: FR (occurrence: FR)
  Receive Date: 20190116
  Receipt Date: 20190123
  Transmission Date: 20190417
  Serious: Yes (Hospitalization)
  Sender: FDA-Public Use
  Company Number: FR-AMGEN-FRACT2019004091

PATIENT
  Age: 60 Year
  Sex: Male
  Weight: 45 kg

DRUGS (17)
  1. OXALIPLATIN. [Suspect]
     Active Substance: OXALIPLATIN
     Indication: METASTASES TO LIVER
     Dosage: UNK
     Route: 013
     Dates: start: 20180827
  2. OXALIPLATIN. [Suspect]
     Active Substance: OXALIPLATIN
     Dosage: 150 MG, QCYCLE
     Route: 041
     Dates: start: 20181218
  3. 5-FLUOROURACIL [Suspect]
     Active Substance: FLUOROURACIL
     Indication: COLORECTAL CANCER METASTATIC
     Dosage: 4000 MG, QCYCLE (CONTINUOUS)
     Route: 041
     Dates: start: 20180810
  4. JANUMET [Concomitant]
     Active Substance: METFORMIN HYDROCHLORIDE\SITAGLIPTIN PHOSPHATE
     Dosage: 50/100 MG, QD
     Dates: start: 20180827
  5. CUTACNYL [Concomitant]
     Active Substance: BENZOYL PEROXIDE
     Dosage: UNK (5 %)
  6. FOLINIC ACID [Suspect]
     Active Substance: LEUCOVORIN
     Indication: COLORECTAL CANCER METASTATIC
     Dosage: 344 MG, QCYCLE
     Route: 041
     Dates: start: 20180810
  7. DEXERYL [Concomitant]
     Dosage: UNK
  8. OXALIPLATIN. [Suspect]
     Active Substance: OXALIPLATIN
     Indication: COLORECTAL CANCER METASTATIC
     Dosage: 150 MG, QCYCLE
     Route: 013
     Dates: start: 20180810
  9. MOVICOL [Concomitant]
     Active Substance: POLYETHYLENE GLYCOL 3350\POTASSIUM CHLORIDE\SODIUM BICARBONATE\SODIUM CHLORIDE
     Dosage: 6 DF, QD
     Dates: start: 20181023
  10. EMLA [Concomitant]
     Active Substance: LIDOCAINE\PRILOCAINE
     Dosage: UNK (5 %)
  11. DOXYCYCLINE. [Concomitant]
     Active Substance: DOXYCYCLINE
     Dosage: 100 MG, QD
     Dates: start: 20180911
  12. INEXIUM [Concomitant]
     Active Substance: ESOMEPRAZOLE
     Dosage: 40 MG, QD
  13. UVEDOSE [Concomitant]
     Active Substance: CHOLECALCIFEROL
     Dosage: 1 DF (100000 UI), QMO
  14. PANITUMUMAB [Suspect]
     Active Substance: PANITUMUMAB
     Indication: COLORECTAL CANCER METASTATIC
     Dosage: 400 MG, QCYCLE
     Route: 041
     Dates: start: 20180928
  15. 5-FLUOROURACIL [Suspect]
     Active Substance: FLUOROURACIL
     Dosage: 650 MG, QCYCLE
     Route: 040
     Dates: start: 20180810
  16. IMODIUM [Concomitant]
     Active Substance: LOPERAMIDE HYDROCHLORIDE
     Dosage: 2 MG, TID
     Dates: start: 20181105
  17. INEXIUM [Concomitant]
     Active Substance: ESOMEPRAZOLE
     Dosage: 80 MG, QD

REACTIONS (1)
  - Pelvic fracture [Not Recovered/Not Resolved]

NARRATIVE: CASE EVENT DATE: 20181218
